FAERS Safety Report 4978440-1 (Version None)
Quarter: 2006Q2

REPORT INFORMATION
  Report Type: 
  Country: None (occurrence: None)
  Receive Date: 20060420
  Receipt Date: 20060418
  Transmission Date: 20061013
  Serious: Yes (Hospitalization)
  Sender: FDA-Public Use
  Company Number: GB-BOEHRINGER INGELHEIM PHARMACEUTICALS, INC.-2006-UK-02020UK

PATIENT
  Age: 89 Year
  Sex: Female

DRUGS (7)
  1. DIPYRIDAMOLE [Suspect]
     Indication: TRANSIENT ISCHAEMIC ATTACK
     Dosage: MR 200MG
     Route: 048
     Dates: start: 20050901, end: 20060210
  2. ASPIRIN [Suspect]
     Indication: TRANSIENT ISCHAEMIC ATTACK
     Route: 048
     Dates: start: 20050901, end: 20060210
  3. ARTHROTEC [Suspect]
     Route: 048
     Dates: start: 20060101
  4. BENDROFLUAZIDE [Concomitant]
     Indication: HYPERTENSION
     Route: 048
  5. ALLOPURINOL [Concomitant]
     Indication: GOUT
     Route: 048
  6. SIMVASTATIN [Concomitant]
     Indication: TRANSIENT ISCHAEMIC ATTACK
     Route: 048
  7. IBUPROFEN [Concomitant]
     Route: 065
     Dates: start: 20060201

REACTIONS (3)
  - DUODENAL ULCER [None]
  - GASTRITIS [None]
  - MELAENA [None]
